FAERS Safety Report 11374470 (Version 1)
Quarter: 2015Q3

REPORT INFORMATION
  Report Type: Spontaneous
  Country: US (occurrence: None)
  Receive Date: 20150812
  Receipt Date: 20150812
  Transmission Date: 20151125
  Serious: No
  Sender: FDA-Public Use
  Company Number: None

PATIENT
  Age: 73 Year
  Sex: Female
  Weight: 74.84 kg

DRUGS (17)
  1. LOSARTAN POT [Concomitant]
  2. WARFARIN [Concomitant]
     Active Substance: WARFARIN
  3. KLOR-CON [Concomitant]
     Active Substance: POTASSIUM CHLORIDE
  4. METOPROLOL [Concomitant]
     Active Substance: METOPROLOL
  5. VITAMIN B12 [Concomitant]
     Active Substance: CYANOCOBALAMIN
  6. COQ10 [Concomitant]
     Active Substance: UBIDECARENONE
  7. BENZONATATE. [Concomitant]
     Active Substance: BENZONATATE
  8. FUROSEMIDE. [Concomitant]
     Active Substance: FUROSEMIDE
  9. CALCIUM + D [Concomitant]
     Active Substance: CALCIUM\VITAMIN D
  10. ENOXAPARIN INJ 80MG/0.8ML [Suspect]
     Active Substance: ENOXAPARIN
     Route: 058
  11. DOXYCYCL HYC [Concomitant]
  12. DICYCLOMINE [Concomitant]
     Active Substance: DICYCLOMINE HYDROCHLORIDE
  13. GLUCOSAMINE [Concomitant]
     Active Substance: GLUCOSAMINE
  14. MULTI-VITAMIN [Concomitant]
     Active Substance: .ALPHA.-TOCOPHEROL ACETATE, DL-\ASCORBIC ACID\CYANOCOBALAMIN\FLUORIDE ION\FOLIC ACID\NIACIN\PYRIDOXINE\RIBOFLAVIN\THIAMINE\VITAMIN A\VITAMIN D
  15. SIMVASTATIN. [Concomitant]
     Active Substance: SIMVASTATIN
  16. SUPREP BOWEL [Concomitant]
  17. VITAMIN C [Concomitant]
     Active Substance: ASCORBIC ACID

REACTIONS (2)
  - Scar [None]
  - Blood blister [None]
